FAERS Safety Report 4733378-X (Version None)
Quarter: 2005Q3

REPORT INFORMATION
  Report Type: 
  Country: None (occurrence: None)
  Receive Date: 20050801
  Receipt Date: 20050801
  Transmission Date: 20060218
  Serious: Yes (Hospitalization)
  Sender: FDA-Public Use
  Company Number: None

PATIENT
  Age: 88 Year

DRUGS (4)
  1. HYDROCHLOROTHIAZIDE [Suspect]
     Indication: HYPERTENSION
     Dosage: 25 MG QD
     Dates: start: 20050531
  2. ACETAZOLAMIDE [Concomitant]
  3. ASPIRIN [Concomitant]
  4. ZOCOR [Concomitant]

REACTIONS (1)
  - SYNCOPE [None]
